FAERS Safety Report 11803455 (Version 1)
Quarter: 2015Q4

REPORT INFORMATION
  Report Type: Spontaneous
  Country: PL (occurrence: PL)
  Receive Date: 20151204
  Receipt Date: 20151204
  Transmission Date: 20160305
  Serious: Yes (Hospitalization)
  Sender: FDA-Public Use
  Company Number: PL-TEVA-613432ACC

PATIENT
  Age: 40 Year
  Sex: Female
  Weight: 75 kg

DRUGS (2)
  1. DICLORATIO [Suspect]
     Active Substance: DICLOFENAC SODIUM
     Route: 030
     Dates: end: 20150829
  2. MILGAMMA N [Suspect]
     Active Substance: BENFOTIAMINE\CYANOCOBALAMIN\PYRIDOXINE HYDROCHLORIDE
     Route: 030
     Dates: end: 20150829

REACTIONS (4)
  - Dysphagia [Recovering/Resolving]
  - Blister [Recovering/Resolving]
  - Tongue oedema [Recovering/Resolving]
  - Urticaria [Recovering/Resolving]

NARRATIVE: CASE EVENT DATE: 20150829
